FAERS Safety Report 21632331 (Version 1)
Quarter: 2022Q4

REPORT INFORMATION
  Report Type: Spontaneous
  Country: JP (occurrence: JP)
  Receive Date: 20221123
  Receipt Date: 20221123
  Transmission Date: 20230113
  Serious: Yes (Other)
  Sender: FDA-Public Use
  Company Number: JP-CHEPLA-2022010557

PATIENT
  Age: 12 Month
  Sex: Female

DRUGS (10)
  1. GANCICLOVIR [Suspect]
     Active Substance: GANCICLOVIR
     Indication: Cytomegalovirus viraemia
     Dosage: ON DAY +2
  2. ALEMTUZUMAB [Suspect]
     Active Substance: ALEMTUZUMAB
     Dosage: 0.16 MG/KG FOR 5 DAYS; DAYS -14 TO -10?DAILY DOSE: 0.16 MILLIGRAM/KG
     Route: 042
  3. FLUDARABINE [Suspect]
     Active Substance: FLUDARABINE PHOSPHATE
     Dosage: 45 MG/M2 FOR 4 DAYS; DAYS -9 TO -6?DAILY DOSE: 45 MILLIGRAM/M PRO SQM
     Route: 042
  4. BUSULFAN [Suspect]
     Active Substance: BUSULFAN
     Dosage: 65 MGXH/L; DAYS -5 TO -2
     Route: 042
  5. CYCLOPHOSPHAMIDE [Suspect]
     Active Substance: CYCLOPHOSPHAMIDE
     Indication: Prophylaxis against graft versus host disease
     Dosage: ON DAYS +3 AND +4?DAILY DOSE: 50 MILLIGRAM/KG
     Route: 042
  6. TACROLIMUS [Suspect]
     Active Substance: TACROLIMUS
     Indication: Prophylaxis against graft versus host disease
     Dosage: ON DAY +5
     Route: 042
  7. MYCOPHENOLATE MOFETIL [Suspect]
     Active Substance: MYCOPHENOLATE MOFETIL
     Indication: Prophylaxis against graft versus host disease
     Dosage: STARTED ON DAY +5/DISCONTINUED ON DAY +42
     Route: 048
  8. FILGRASTIM [Suspect]
     Active Substance: FILGRASTIM
     Indication: Prophylaxis against graft versus host disease
     Dosage: ON DAYS +6 TO +12
     Route: 042
  9. VORICONAZOLE [Concomitant]
     Active Substance: VORICONAZOLE
     Indication: Aspergillus infection
  10. SULFAMETHOXAZOLE\TRIMETHOPRIM [Concomitant]
     Active Substance: SULFAMETHOXAZOLE\TRIMETHOPRIM

REACTIONS (2)
  - Venoocclusive liver disease [Recovered/Resolved]
  - Product use issue [Unknown]
